FAERS Safety Report 11919129 (Version 2)
Quarter: 2016Q1

REPORT INFORMATION
  Report Type: Spontaneous
  Country: US (occurrence: US)
  Receive Date: 20160115
  Receipt Date: 20160209
  Transmission Date: 20160526
  Serious: Yes (Hospitalization, Other)
  Sender: FDA-Public Use
  Company Number: US-JNJFOC-20151208269

PATIENT
  Age: 64 Year
  Sex: Male

DRUGS (4)
  1. XARELTO [Suspect]
     Active Substance: RIVAROXABAN
     Indication: PULMONARY EMBOLISM
     Route: 048
     Dates: end: 20150121
  2. XARELTO [Suspect]
     Active Substance: RIVAROXABAN
     Indication: DEEP VEIN THROMBOSIS
     Dosage: 15 AND 20 MG
     Route: 048
     Dates: start: 20140923, end: 20150105
  3. XARELTO [Suspect]
     Active Substance: RIVAROXABAN
     Indication: DEEP VEIN THROMBOSIS
     Route: 048
     Dates: end: 20150121
  4. XARELTO [Suspect]
     Active Substance: RIVAROXABAN
     Indication: PULMONARY EMBOLISM
     Dosage: 15 AND 20 MG
     Route: 048
     Dates: start: 20140923, end: 20150105

REACTIONS (5)
  - Pulmonary thrombosis [Not Recovered/Not Resolved]
  - Gastrointestinal haemorrhage [Unknown]
  - Renal haematoma [Unknown]
  - Epistaxis [Unknown]
  - Haemorrhagic stroke [Unknown]

NARRATIVE: CASE EVENT DATE: 20150105
